FAERS Safety Report 6502195-2 (Version None)
Quarter: 2009Q4

REPORT INFORMATION
  Report Type: 
  Country: None (occurrence: None)
  Receive Date: 20091216
  Receipt Date: 20090916
  Transmission Date: 20100525
  Serious: No
  Sender: FDA-Public Use
  Company Number: US-ABBOTT-09P-163-0598062-00

PATIENT
  Sex: Male

DRUGS (14)
  1. TRILIPIX [Suspect]
     Indication: BLOOD TRIGLYCERIDES INCREASED
     Dates: start: 20090501
  2. LASIX [Concomitant]
     Indication: CARDIAC FAILURE CONGESTIVE
     Dates: start: 20030101
  3. DIGOXIN [Concomitant]
     Indication: CARDIAC FAILURE CONGESTIVE
     Dates: start: 20030101
  4. LEXAPRO [Concomitant]
     Indication: DEPRESSION
     Dates: start: 20030101
  5. ALLOPURINOL [Concomitant]
     Indication: CARDIAC FAILURE CONGESTIVE
     Dates: start: 20030101
  6. XANAX [Concomitant]
     Indication: DEPRESSION
     Dates: start: 20030101
  7. PREVACID [Concomitant]
     Indication: GASTROOESOPHAGEAL REFLUX DISEASE
     Dates: start: 20030101
  8. POTASSIUM [Concomitant]
     Indication: CARDIAC FAILURE CONGESTIVE
     Dates: start: 20030101
  9. ASPIRIN [Concomitant]
     Indication: CARDIAC FAILURE CONGESTIVE
     Dates: start: 20030101
  10. COREG [Concomitant]
     Indication: CARDIAC FAILURE CONGESTIVE
     Dates: start: 20030101
  11. AVAPRO [Concomitant]
     Indication: CARDIAC FAILURE CONGESTIVE
     Dates: start: 20030101
  12. CRESTOR [Concomitant]
     Indication: BLOOD TRIGLYCERIDES INCREASED
     Dates: start: 20080101
  13. FISH OIL [Concomitant]
     Indication: MEDICAL DIET
  14. ALLEGRA [Concomitant]
     Indication: SEASONAL ALLERGY
     Dates: start: 20030101

REACTIONS (1)
  - RASH PAPULAR [None]
